FAERS Safety Report 21723333 (Version 1)
Quarter: 2022Q4

REPORT INFORMATION
  Report Type: Spontaneous
  Country: CA (occurrence: CA)
  Receive Date: 20221213
  Receipt Date: 20221213
  Transmission Date: 20230113
  Serious: No
  Sender: FDA-Public Use
  Company Number: CA-VIVUS, Inc.-2022V1000288

PATIENT

DRUGS (1)
  1. PANCREASE MT [Suspect]
     Active Substance: PANCRELIPASE
     Indication: Product used for unknown indication
     Route: 065

REACTIONS (1)
  - Gastric disorder [Unknown]
